FAERS Safety Report 10036245 (Version 2)
Quarter: 2014Q2

REPORT INFORMATION
  Report Type: Report from Study
  Country: JP (occurrence: JP)
  Receive Date: 20140325
  Receipt Date: 20140404
  Transmission Date: 20141212
  Serious: No
  Sender: FDA-Public Use
  Company Number: JP-BAXTER-2014BAX013719

PATIENT
  Age: 78 Year
  Sex: Male
  Weight: 55 kg

DRUGS (10)
  1. SUPRANE [Suspect]
     Indication: LUNG LOBECTOMY
     Dosage: 2.7-3.9% END TIDAL CONCENTRATION
     Route: 055
     Dates: start: 20140218, end: 20140218
  2. ULTIVA [Suspect]
     Indication: INDUCTION OF ANAESTHESIA
     Dosage: PER HOUR
     Route: 041
     Dates: start: 20140218, end: 20140218
  3. FENTANYL [Concomitant]
     Indication: ANALGESIC THERAPY
     Route: 042
     Dates: start: 20140218, end: 20140218
  4. ESLAX [Concomitant]
     Indication: MUSCLE RELAXANT THERAPY
     Route: 042
     Dates: start: 20140218, end: 20140218
  5. SIGMART [Concomitant]
     Indication: PROPHYLAXIS
     Dosage: PER HOUR
     Route: 041
     Dates: start: 20130218
  6. SIGMART [Concomitant]
     Indication: HYPERTENSION
  7. ONOACT [Concomitant]
     Indication: PROPHYLAXIS
     Dosage: PER HOUR
     Route: 041
     Dates: start: 20140218, end: 20140218
  8. ONOACT [Concomitant]
     Indication: HYPERTENSION
  9. PROPOFOL [Concomitant]
     Indication: INDUCTION OF ANAESTHESIA
     Route: 042
     Dates: start: 20140218, end: 20140218
  10. INOVAN [Concomitant]
     Indication: ANAESTHETIC COMPLICATION VASCULAR
     Dosage: PER HOUR
     Route: 041
     Dates: start: 20140218, end: 20140218

REACTIONS (1)
  - Hypotension [Recovered/Resolved]
